FAERS Safety Report 6090213-8 (Version None)
Quarter: 2009Q1

REPORT INFORMATION
  Report Type: 
  Country: None (occurrence: None)
  Receive Date: 20090224
  Receipt Date: 20081210
  Transmission Date: 20090719
  Serious: No
  Sender: FDA-Public Use
  Company Number: US-ABBOTT-08P-163-0492248-00

PATIENT
  Sex: Male
  Weight: 99.88 kg

DRUGS (7)
  1. SIMCOR [Suspect]
     Indication: LOW DENSITY LIPOPROTEIN INCREASED
     Dosage: 1000MG/20MG DAILY
     Dates: start: 20080701
  2. SIMCOR [Suspect]
     Indication: LOW DENSITY LIPOPROTEIN INCREASED
     Dosage: 500MG/20MG DAILY
     Dates: start: 20080601, end: 20080701
  3. SIMCOR [Suspect]
  4. CILOSTAZOL [Suspect]
     Indication: POOR PERIPHERAL CIRCULATION
     Dates: start: 20081111, end: 20081207
  5. TEKTURNA [Concomitant]
     Indication: DRUG USE FOR UNKNOWN INDICATION
  6. COREG [Concomitant]
     Indication: HYPERTENSION
  7. ASPIRIN [Concomitant]
     Indication: PROPHYLAXIS

REACTIONS (2)
  - PRURITUS GENERALISED [None]
  - RASH GENERALISED [None]
